FAERS Safety Report 8283311-1 (Version None)
Quarter: 2012Q2

REPORT INFORMATION
  Report Type: 
  Country: None (occurrence: None)
  Receive Date: 20120413
  Receipt Date: 20120410
  Transmission Date: 20120825
  Serious: Yes (Death, Hospitalization, Disabling)
  Sender: FDA-Public Use
  Company Number: JP-ELI_LILLY_AND_COMPANY-JP201202000944

PATIENT
  Sex: Male
  Weight: 54 kg

DRUGS (12)
  1. OXYCONTIN [Concomitant]
     Dosage: 20 MG, UNK
     Route: 048
     Dates: start: 20111127, end: 20111204
  2. OXYCONTIN [Concomitant]
     Dosage: 40 MG, UNK
     Route: 048
     Dates: start: 20111205, end: 20111207
  3. MAGNESIUM SULFATE [Concomitant]
     Route: 048
  4. FENTAS [Concomitant]
     Dosage: 4 MG, UNK
     Route: 062
     Dates: start: 20111217
  5. GASMOTIN [Concomitant]
     Route: 048
  6. COTRIM [Concomitant]
     Route: 048
  7. OMEPRAZOLE [Concomitant]
     Route: 048
  8. FENTAS [Concomitant]
     Dosage: 2 MG, UNK
     Route: 062
     Dates: start: 20111208, end: 20111216
  9. SEROQUEL [Concomitant]
     Route: 048
  10. GEMZAR [Suspect]
     Indication: PANCREATIC CARCINOMA NON-RESECTABLE
     Dosage: 1800 MG, UNK
     Route: 042
     Dates: start: 20111208, end: 20120208
  11. OXYCONTIN [Concomitant]
     Dosage: 10 MG, UNK
     Route: 048
     Dates: start: 20111125, end: 20111126
  12. CELECOXIB [Concomitant]
     Route: 048

REACTIONS (4)
  - HAEMOGLOBIN DECREASED [None]
  - PERONEAL NERVE PALSY [None]
  - HYPOAESTHESIA [None]
  - PNEUMONIA [None]
